FAERS Safety Report 19401788 (Version 3)
Quarter: 2023Q1

REPORT INFORMATION
  Report Type: Report from Study
  Country: CA (occurrence: CA)
  Receive Date: 20210610
  Receipt Date: 20230120
  Transmission Date: 20230417
  Serious: Yes (Other)
  Sender: FDA-Public Use
  Company Number: CA-JNJFOC-20210610608

PATIENT
  Age: 16 Year
  Sex: Male
  Weight: 59.7 kg

DRUGS (2)
  1. REMICADE [Suspect]
     Active Substance: INFLIXIMAB
     Indication: Colitis ulcerative
     Route: 042
     Dates: start: 20200129
  2. REMICADE [Suspect]
     Active Substance: INFLIXIMAB
     Dosage: CURRENT PRESCRIPTION SAME AS OCT-2021. NO CHANGES. STABLE.
     Route: 042
     Dates: start: 2021

REACTIONS (2)
  - Colitis ulcerative [Unknown]
  - Off label use [Unknown]

NARRATIVE: CASE EVENT DATE: 20200901
